FAERS Safety Report 8764561 (Version 1)
Quarter: 2012Q4

REPORT INFORMATION
  Report Type: 
  Country: US (occurrence: US)
  Receive Date: 20120831
  Receipt Date: 20120831
  Transmission Date: 20130627
  Serious: No
  Sender: FDA-Public Use
  Company Number: US-ASTRAZENECA-2012SE28052

PATIENT
  Age: 55 Year
  Sex: Female
  Weight: 90.7 kg

DRUGS (5)
  1. SYMBICORT PMDI [Suspect]
     Indication: ASTHMA
     Dosage: 160/4.5 MCG, TWO PUFFS TWICE DAILY
     Route: 055
     Dates: start: 2007
  2. COMBIVENT [Concomitant]
     Indication: ASTHMA
     Route: 055
  3. LEVOTHYROXINE [Concomitant]
     Indication: HYPOTHYROIDISM
     Route: 048
  4. IPRATROPIUM BROMIDE, ALBUTEROL SULFATE [Concomitant]
     Indication: ASTHMA
     Dosage: 0.5, 3MG/3ML, QID, INHALE
  5. PREDNISONE [Concomitant]
     Indication: ASTHMA

REACTIONS (7)
  - Malaise [Not Recovered/Not Resolved]
  - Wheezing [Not Recovered/Not Resolved]
  - Oxygen saturation decreased [Unknown]
  - Somnolence [Unknown]
  - Dyspnoea [Unknown]
  - Throat tightness [Unknown]
  - Rash [Not Recovered/Not Resolved]
